FAERS Safety Report 17542327 (Version 1)
Quarter: 2020Q1

REPORT INFORMATION
  Report Type: Spontaneous
  Country: US (occurrence: US)
  Receive Date: 20200313
  Receipt Date: 20200313
  Transmission Date: 20200409
  Serious: Yes (Hospitalization)
  Sender: FDA-Public Use
  Company Number: US-009507513-2003USA001277

PATIENT
  Age: 69 Year
  Sex: Female

DRUGS (19)
  1. VENLAFAXINE HYDROCHLORIDE. [Concomitant]
     Active Substance: VENLAFAXINE HYDROCHLORIDE
     Indication: DEPRESSION
     Dosage: 1 TABLET, QD
     Route: 048
  2. MAGNESIUM (UNSPECIFIED) [Concomitant]
     Active Substance: MAGNESIUM
     Indication: RESTLESS LEGS SYNDROME
     Dosage: TOTAL DAILY DOSE: 1 TABLET
     Route: 048
  3. DONEPEZIL. [Concomitant]
     Active Substance: DONEPEZIL
     Indication: DEMENTIA
     Dosage: 1 TABLET, QD
     Route: 048
  4. SINEMET [Suspect]
     Active Substance: CARBIDOPA\LEVODOPA
     Indication: PARKINSON^S DISEASE
     Dosage: 0.5 DOSAGE FORM, 1 IN 2 HR
     Route: 048
     Dates: start: 2019, end: 2020
  5. GABAPENTIN. [Concomitant]
     Active Substance: GABAPENTIN
     Indication: RESTLESS LEGS SYNDROME
     Dosage: 3 CAPSULE, QD
     Route: 048
  6. CETIRIZINE HYDROCHLORIDE. [Concomitant]
     Active Substance: CETIRIZINE HYDROCHLORIDE
     Indication: PRODUCT USED FOR UNKNOWN INDICATION
     Dosage: 1 TABLET, QD
     Route: 048
  7. FOSAMAX [Concomitant]
     Active Substance: ALENDRONATE SODIUM
     Indication: BONE DENSITY ABNORMAL
     Dosage: 70 MILLIGRAM, QD
     Route: 048
  8. PRAMIPEXOLE. [Concomitant]
     Active Substance: PRAMIPEXOLE
     Indication: PARKINSON^S DISEASE
     Dosage: 1 TABLET, QD
     Route: 048
  9. CLONAZEPAM. [Concomitant]
     Active Substance: CLONAZEPAM
     Indication: ANXIETY
     Dosage: 1 TABLET, QD
     Route: 048
  10. VITAMINS (UNSPECIFIED) [Concomitant]
     Active Substance: VITAMINS
  11. ESOMEPRAZOLE MAGNESIUM. [Concomitant]
     Active Substance: ESOMEPRAZOLE MAGNESIUM
     Indication: GASTROOESOPHAGEAL REFLUX DISEASE
     Dosage: 1 CAPSULE, QD
     Route: 048
  12. LIDODERM [Concomitant]
     Active Substance: LIDOCAINE
     Indication: PRODUCT USED FOR UNKNOWN INDICATION
     Dosage: 1 PATCH, QD
     Route: 061
  13. SINGULAIR [Concomitant]
     Active Substance: MONTELUKAST SODIUM
     Indication: HYPERSENSITIVITY
     Dosage: 1 TABLET, UNK
     Route: 048
  14. VENLAFAXINE HYDROCHLORIDE. [Concomitant]
     Active Substance: VENLAFAXINE HYDROCHLORIDE
     Indication: DEPRESSION
     Dosage: 1 TABLET, QD
     Route: 048
  15. FLONASE [Concomitant]
     Active Substance: FLUTICASONE PROPIONATE
     Indication: SEASONAL ALLERGY
     Dosage: 1 SPRAY, QD
     Route: 045
  16. TYLOX [Concomitant]
     Active Substance: ACETAMINOPHEN\OXYCODONE HYDROCHLORIDE
     Indication: PAIN
     Dosage: 10/325 (1 TABLET), QD
     Route: 048
  17. DUOPA [Suspect]
     Active Substance: CARBIDOPA\LEVODOPA
     Dosage: 100 MILLIGRAM, QD; ROUTE OF ADMINISTRATION:
     Dates: start: 20180705, end: 2019
  18. DUOPA [Suspect]
     Active Substance: CARBIDOPA\LEVODOPA
     Dosage: 100 MILLIGRAM, QD; ROUTE OF ADMINISTRATION:
     Dates: start: 202001
  19. SUMATRIPTAN SUCCINATE. [Concomitant]
     Active Substance: SUMATRIPTAN SUCCINATE
     Indication: MIGRAINE
     Dosage: 1 TABLET, QD
     Route: 048

REACTIONS (2)
  - Fall [Recovered/Resolved]
  - Therapeutic response shortened [Unknown]

NARRATIVE: CASE EVENT DATE: 20191227
